FAERS Safety Report 16806893 (Version 1)
Quarter: 2019Q3

REPORT INFORMATION
  Report Type: Report from Study
  Country: JP (occurrence: JP)
  Receive Date: 20190913
  Receipt Date: 20190913
  Transmission Date: 20191005
  Serious: Yes (Life-Threatening, Hospitalization, Other)
  Sender: FDA-Public Use
  Company Number: JP-ENDO PHARMACEUTICALS INC-2019-108074

PATIENT
  Age: 30 Year
  Sex: Male
  Weight: 60.7 kg

DRUGS (8)
  1. ANTIZOL [Suspect]
     Active Substance: FOMEPIZOLE
     Dosage: 600 MG (09:00 UNTIL 10:00), UNK
     Route: 041
     Dates: start: 20190126, end: 20190126
  2. ANTIZOL [Suspect]
     Active Substance: FOMEPIZOLE
     Dosage: 600 MG (21:00 TO 22:00), UNK
     Route: 041
     Dates: start: 20190126, end: 20190126
  3. ANTIZOL [Suspect]
     Active Substance: FOMEPIZOLE
     Indication: CHEMICAL POISONING
     Dosage: 900 MG (15:30 UNTIL 16:30), DAILY
     Route: 041
     Dates: start: 20190125, end: 20190125
  4. MARZULENE S [Concomitant]
     Active Substance: GLUTAMINE\SODIUM GUALENATE
     Indication: PRODUCT USED FOR UNKNOWN INDICATION
  5. ANTIZOL [Suspect]
     Active Substance: FOMEPIZOLE
     Dosage: 300 MG (09:00 TO 10:00), UNK
     Route: 041
     Dates: start: 20190127, end: 20190127
  6. D-MANNITOL [Concomitant]
     Active Substance: MANNITOL
     Indication: ACUTE KIDNEY INJURY
     Dosage: UNK
  7. ANTIZOL [Suspect]
     Active Substance: FOMEPIZOLE
     Dosage: 600 MG (ADMINISTERED UNTIL 22:30), DAILY
     Route: 041
     Dates: start: 20190125, end: 20190125
  8. MIYA-BM [Concomitant]
     Active Substance: CLOSTRIDIUM BUTYRICUM SPORES STRAIN M-55
     Indication: PRODUCT USED FOR UNKNOWN INDICATION

REACTIONS (1)
  - Hyponatraemia [Recovered/Resolved]

NARRATIVE: CASE EVENT DATE: 20190127
